FAERS Safety Report 17903541 (Version 1)
Quarter: 2020Q2

REPORT INFORMATION
  Report Type: Report from Study
  Country: PA (occurrence: PA)
  Receive Date: 20200616
  Receipt Date: 20200616
  Transmission Date: 20200714
  Serious: Yes (Other)
  Sender: FDA-Public Use
  Company Number: NVSC2020PA094667

PATIENT
  Age: 48 Year
  Sex: Male

DRUGS (4)
  1. EXFORGE HCT [Suspect]
     Active Substance: AMLODIPINE BESYLATE\HYDROCHLOROTHIAZIDE\VALSARTAN
     Dosage: 10/320/25 MG SINCE SEPTEMBER/IN TREATMENT
     Route: 065
  2. EXFORGE HCT [Suspect]
     Active Substance: AMLODIPINE BESYLATE\HYDROCHLOROTHIAZIDE\VALSARTAN
     Dosage: 5/160/12.5 MG
     Route: 065
  3. EXFORGE HCT [Suspect]
     Active Substance: AMLODIPINE BESYLATE\HYDROCHLOROTHIAZIDE\VALSARTAN
     Indication: PRODUCT USED FOR UNKNOWN INDICATION
     Dosage: 10/320/25 MG,SPLITTED IT
     Route: 065
     Dates: start: 201910
  4. EXFORGE HCT [Suspect]
     Active Substance: AMLODIPINE BESYLATE\HYDROCHLOROTHIAZIDE\VALSARTAN
     Dosage: 5/160/25 MG
     Route: 065

REACTIONS (5)
  - Fracture [Unknown]
  - Gait disturbance [Unknown]
  - Wrong technique in product usage process [Unknown]
  - Extra dose administered [Unknown]
  - Incorrect dose administered [Unknown]
